FAERS Safety Report 24756234 (Version 1)
Quarter: 2024Q4

REPORT INFORMATION
  Report Type: Spontaneous
  Country: CA (occurrence: CA)
  Receive Date: 20241220
  Receipt Date: 20241220
  Transmission Date: 20250114
  Serious: Yes (Hospitalization)
  Sender: NOVO NORDISK
  Company Number: None

PATIENT
  Age: 36 Year
  Sex: Female

DRUGS (2)
  1. SEMAGLUTIDE [Suspect]
     Active Substance: SEMAGLUTIDE
     Indication: Weight control
     Dosage: 1 MG, QW
     Route: 058
  2. WEGOVY [Suspect]
     Active Substance: SEMAGLUTIDE
     Indication: Weight control

REACTIONS (9)
  - Abdominal pain [Unknown]
  - Abdominal pain upper [Unknown]
  - Cholecystitis acute [Unknown]
  - Cholelithiasis [Unknown]
  - Gallbladder enlargement [Unknown]
  - Hepatic steatosis [Unknown]
  - Murphy^s sign positive [Unknown]
  - Nausea [Unknown]
  - Vomiting [Unknown]
